FAERS Safety Report 12978050 (Version 1)
Quarter: 2016Q4

REPORT INFORMATION
  Report Type: Spontaneous
  Country: US (occurrence: US)
  Receive Date: 20161128
  Receipt Date: 20161128
  Transmission Date: 20170207
  Serious: No
  Sender: FDA-Public Use
  Company Number: US-BAYER-2016-223777

PATIENT
  Sex: Female

DRUGS (1)
  1. ALEVE [Suspect]
     Active Substance: NAPROXEN SODIUM
     Indication: INFLAMMATION
     Dosage: 1 DF, QD

REACTIONS (7)
  - Blood pressure increased [Unknown]
  - Product use issue [Unknown]
  - Joint range of motion decreased [Unknown]
  - Expired product administered [Unknown]
  - Pain in extremity [Unknown]
  - Arthropathy [Unknown]
  - Pain [Unknown]
